FAERS Safety Report 19785675 (Version 7)
Quarter: 2022Q2

REPORT INFORMATION
  Report Type: Spontaneous
  Country: CA (occurrence: CA)
  Receive Date: 20210903
  Receipt Date: 20220630
  Transmission Date: 20220721
  Serious: Yes (Hospitalization)
  Sender: FDA-Public Use
  Company Number: CA-CELLTRION INC.-2021CA008358

PATIENT

DRUGS (11)
  1. INFLECTRA [Suspect]
     Active Substance: INFLIXIMAB-DYYB
     Indication: Crohn^s disease
     Dosage: 500 MG AT 0,2,6 WEEKS AND THEN FOLLOWED BY EVERY 8 WEEKS MAINTAINANCE
     Route: 042
     Dates: start: 20210330
  2. INFLECTRA [Suspect]
     Active Substance: INFLIXIMAB-DYYB
     Dosage: 500 MG AT 0,2,6 WEEKS AND THEN FOLLOWED BY EVERY 8 WEEKS MAINTAINANCE
     Route: 042
     Dates: start: 20210412
  3. INFLECTRA [Suspect]
     Active Substance: INFLIXIMAB-DYYB
     Dosage: 500 MG AT 0,2,6 WEEKS AND THEN FOLLOWED BY EVERY 8 WEEKS
     Route: 042
     Dates: start: 20210510
  4. INFLECTRA [Suspect]
     Active Substance: INFLIXIMAB-DYYB
     Dosage: 500 MG AT 0,2,6 WEEKS AND THEN FOLLOWED BY EVERY 8 WEEKS MAINTAINANCE
     Route: 042
     Dates: start: 20210630
  5. INFLECTRA [Suspect]
     Active Substance: INFLIXIMAB-DYYB
     Dosage: 500 MG AT 0,2,6 WEEKS AND THEN FOLLOWED BY EVERY 8 WEEKS MAINTAINANCE
     Route: 042
     Dates: start: 20210909
  6. INFLECTRA [Suspect]
     Active Substance: INFLIXIMAB-DYYB
     Dosage: 500 MG AT 0,2,6 WEEKS AND THEN FOLLOWED BY EVERY 8 WEEKS MAINTAINANCE
     Route: 042
     Dates: start: 20211103
  7. INFLECTRA [Suspect]
     Active Substance: INFLIXIMAB-DYYB
     Dosage: 500 MG AT 0,2,6 WEEKS AND THEN FOLLOWED BY EVERY 8 WEEKS MAINTAINANCE
     Route: 042
     Dates: start: 20211103
  8. INFLECTRA [Suspect]
     Active Substance: INFLIXIMAB-DYYB
     Dosage: 500 MG AT 0,2,6 WEEKS AND THEN FOLLOWED BY EVERY 8 WEEKS MAINTAINANCE
     Route: 042
     Dates: start: 20211230
  9. INFLECTRA [Suspect]
     Active Substance: INFLIXIMAB-DYYB
     Dosage: 500 MG AT 0,2,6 WEEKS AND THEN FOLLOWED BY EVERY 8 WEEKS MAINTAINANCE
     Route: 042
     Dates: start: 20220224
  10. INFLECTRA [Suspect]
     Active Substance: INFLIXIMAB-DYYB
     Dosage: 500 MG AT 0,2,6 WEEKS AND THEN FOLLOWED BY EVERY 8 WEEKS MAINTAINANCE
     Route: 042
     Dates: start: 20220507
  11. INFLECTRA [Suspect]
     Active Substance: INFLIXIMAB-DYYB
     Dosage: 500 MG AT 0,2,6 WEEKS AND THEN FOLLOWED BY EVERY 8 WEEKS MAINTAINANCE
     Route: 042
     Dates: start: 20220616

REACTIONS (13)
  - Large intestine infection [Unknown]
  - Condition aggravated [Not Recovered/Not Resolved]
  - Off label use [Unknown]
  - Intentional product use issue [Unknown]
  - Inappropriate schedule of product administration [Unknown]
  - Intervertebral disc protrusion [Unknown]
  - Arthralgia [Not Recovered/Not Resolved]
  - Insomnia [Unknown]
  - Nocturia [Unknown]
  - Back pain [Not Recovered/Not Resolved]
  - Hyperhidrosis [Unknown]
  - Dizziness [Not Recovered/Not Resolved]
  - Aphthous ulcer [Not Recovered/Not Resolved]

NARRATIVE: CASE EVENT DATE: 20210510
